FAERS Safety Report 19672834 (Version 1)
Quarter: 2021Q3

REPORT INFORMATION
  Report Type: Spontaneous
  Country: DE (occurrence: DE)
  Receive Date: 20210809
  Receipt Date: 20210809
  Transmission Date: 20211014
  Serious: Yes (Other)
  Sender: FDA-Public Use
  Company Number: DE-AUROBINDO-AUR-APL-2021-033714

PATIENT
  Sex: Male

DRUGS (4)
  1. 5?FLUOROURACIL [Suspect]
     Active Substance: FLUOROURACIL
     Indication: TONGUE CANCER METASTATIC
     Dosage: UNK
     Route: 065
     Dates: start: 201103, end: 201105
  2. DOCETAXEL. [Suspect]
     Active Substance: DOCETAXEL
     Indication: TONGUE CANCER METASTATIC
     Dosage: UNK
     Route: 065
     Dates: start: 201103, end: 201105
  3. CISPLATIN. [Suspect]
     Active Substance: CISPLATIN
     Indication: TONGUE CANCER METASTATIC
     Dosage: UNK
     Route: 065
     Dates: start: 201103, end: 201105
  4. CETUXIMAB. [Suspect]
     Active Substance: CETUXIMAB
     Indication: RADIOTHERAPY
     Dosage: UNK (70/64/54 GY)
     Route: 065
     Dates: start: 201105, end: 201107

REACTIONS (2)
  - Head and neck cancer metastatic [Unknown]
  - Recurrent cancer [Unknown]

NARRATIVE: CASE EVENT DATE: 201306
